FAERS Safety Report 17210181 (Version 1)
Quarter: 2019Q4

REPORT INFORMATION
  Report Type: Spontaneous
  Country: NL (occurrence: GB)
  Receive Date: 20191227
  Receipt Date: 20191227
  Transmission Date: 20200122
  Serious: Yes (Death, Other)
  Sender: FDA-Public Use
  Company Number: GB-FRESENIUS KABI-FK201914423

PATIENT
  Age: 23 Year
  Sex: Male

DRUGS (2)
  1. ETOPOSIDE (MANUFACTURER UNKNOWN) [Suspect]
     Active Substance: ETOPOSIDE
     Indication: T-CELL TYPE ACUTE LEUKAEMIA
     Dosage: 2400 MG/M2 (ETOPOSIDE 2.4 G/M2 AS A CONTINUOUS INTRAVENOUS INFUSION OVER 34 H COMMENCING ON DAY 1)
     Route: 042
  2. CYCLOPHOSPHAMIDE. [Suspect]
     Active Substance: CYCLOPHOSPHAMIDE
     Indication: T-CELL TYPE ACUTE LEUKAEMIA
     Dosage: 2000 MG/M2 (CYCLOPHOSPHAMIDE 2 G/M2 INTRAVENOUS INFUSION OVER 2 H DAILY ON DAYS 3-5)
     Route: 042

REACTIONS (2)
  - Disease progression [Fatal]
  - Bone marrow failure [Unknown]
